FAERS Safety Report 13708375 (Version 2)
Quarter: 2017Q3

REPORT INFORMATION
  Report Type: Spontaneous
  Country: US (occurrence: US)
  Receive Date: 20170630
  Receipt Date: 20170711
  Transmission Date: 20171127
  Serious: Yes (Hospitalization)
  Sender: FDA-Public Use
  Company Number: US-B.I. PHARMACEUTICALS,INC./RIDGEFIELD-2017-BI-035969

PATIENT
  Sex: Male
  Weight: 84.82 kg

DRUGS (13)
  1. ROSUVASTATIN CALCIUM. [Concomitant]
     Active Substance: ROSUVASTATIN CALCIUM
     Indication: HYPERLIPIDAEMIA
     Route: 048
     Dates: start: 20150406
  2. VITAMIN C [Concomitant]
     Active Substance: ASCORBIC ACID
     Indication: DEFICIENCY ANAEMIA
     Route: 048
     Dates: start: 20150520
  3. PRADAXA [Suspect]
     Active Substance: DABIGATRAN ETEXILATE MESYLATE
     Indication: PROPHYLAXIS
  4. TESTIM GEL [Concomitant]
     Indication: BLOOD TESTOSTERONE
     Dosage: STRENGTH: 50MG/5GM (1%) TESTOSTERONE
     Route: 062
     Dates: start: 20150406
  5. WELLBUTRIN [Concomitant]
     Active Substance: BUPROPION HYDROCHLORIDE
     Indication: DEPRESSION
     Route: 048
  6. VENLAFAXINE HCL [Concomitant]
     Active Substance: VENLAFAXINE HYDROCHLORIDE
     Indication: PAIN
     Route: 048
     Dates: start: 20160414
  7. PRADAXA [Suspect]
     Active Substance: DABIGATRAN ETEXILATE MESYLATE
     Indication: ATRIAL FIBRILLATION
     Route: 048
  8. VENLAFAXINE HCL [Concomitant]
     Active Substance: VENLAFAXINE HYDROCHLORIDE
     Indication: DEPRESSION
  9. SORBITOL SOLUTION [Concomitant]
     Active Substance: SORBITOL
     Indication: CONSTIPATION
     Route: 048
     Dates: start: 20150404
  10. TIMOPTIC SOLUTION [Concomitant]
     Indication: GLAUCOMA
     Dosage: STRENGTH: 0.5%
     Route: 031
     Dates: start: 20150406
  11. TIZANIDINE HCL [Concomitant]
     Active Substance: TIZANIDINE HYDROCHLORIDE
     Indication: MUSCLE SPASMS
     Route: 055
     Dates: start: 20150430
  12. TAMSULOSIN HCL [Concomitant]
     Active Substance: TAMSULOSIN
     Indication: BENIGN PROSTATIC HYPERPLASIA
     Route: 048
  13. TIZANIDINE HCL [Concomitant]
     Active Substance: TIZANIDINE HYDROCHLORIDE
     Route: 048
     Dates: start: 20150430

REACTIONS (5)
  - Periorbital haematoma [Unknown]
  - Skin abrasion [Unknown]
  - Laceration [Unknown]
  - Fall [Unknown]
  - Muscle strain [Unknown]
